FAERS Safety Report 8757963 (Version 2)
Quarter: 2012Q4

REPORT INFORMATION
  Report Type: 
  Country: US (occurrence: US)
  Receive Date: 20120828
  Receipt Date: 20120926
  Transmission Date: 20130627
  Serious: No
  Sender: FDA-Public Use
  Company Number: US-PFIZER INC-2012206284

PATIENT
  Age: 24 Year
  Sex: Male
  Weight: 53.97 kg

DRUGS (7)
  1. CALTRATE [Suspect]
     Indication: BONE DISORDER
     Dosage: UNK, daily
     Dates: start: 2000
  2. LYRICA [Suspect]
     Dosage: 175 mg, daily
     Dates: start: 2006
  3. LYRICA [Suspect]
     Dosage: UNK, daily
  4. CATAPRES [Concomitant]
     Indication: HYPERTENSION
     Dosage: 0.1 mg, 2x/day
     Dates: start: 1991
  5. FLORINEF [Concomitant]
     Indication: HYPERTENSION
     Dosage: 0.1 mg, daily
     Dates: start: 1991
  6. CARBIDOPA [Concomitant]
     Indication: HEREDITARY DISORDER
     Dosage: 250 mg, 3x/day
     Dates: start: 2010
  7. MIRALAX [Concomitant]
     Indication: CONSTIPATION
     Dosage: UNK

REACTIONS (1)
  - Heart rate irregular [Unknown]
